FAERS Safety Report 6644604-4 (Version None)
Quarter: 2010Q1

REPORT INFORMATION
  Report Type: 
  Country: None (occurrence: None)
  Receive Date: 20100318
  Receipt Date: 20100318
  Transmission Date: 20100710
  Serious: Yes (Other)
  Sender: FDA-Public Use
  Company Number: None

PATIENT
  Age: 27 Year
  Sex: Female
  Weight: 67.3 kg

DRUGS (4)
  1. REGLAN [Suspect]
     Indication: MIGRAINE
     Dosage: 20 MG REGLAN PIGGYBACKED ON IV IV
     Route: 042
     Dates: start: 20100316
  2. REGLAN [Suspect]
     Indication: NAUSEA
     Dosage: 20 MG REGLAN PIGGYBACKED ON IV IV
     Route: 042
     Dates: start: 20100316
  3. REGLAN [Suspect]
     Indication: VOMITING
     Dosage: 20 MG REGLAN PIGGYBACKED ON IV IV
     Route: 042
     Dates: start: 20100316
  4. BENADRYL [Suspect]
     Dosage: 50 MG BENADRYL PRIOR TO STARTING IV (GIVEN TO TRY TO PREVENT PROBLEM
     Route: 042

REACTIONS (5)
  - ANXIETY [None]
  - CONFUSIONAL STATE [None]
  - CRYING [None]
  - DRY MOUTH [None]
  - NERVOUSNESS [None]
